FAERS Safety Report 9128334 (Version 1)
Quarter: 2013Q1

REPORT INFORMATION
  Report Type: Spontaneous
  Country: US (occurrence: US)
  Receive Date: 20130228
  Receipt Date: 20130228
  Transmission Date: 20140127
  Serious: No
  Sender: FDA-Public Use
  Company Number: US-GLAXOSMITHKLINE-A0832285A

PATIENT
  Age: 56 Year
  Sex: Female

DRUGS (8)
  1. IMITREX [Suspect]
     Indication: MIGRAINE
     Dosage: 6MG AS REQUIRED
     Route: 058
     Dates: start: 199212
  2. SUMATRIPTAN [Suspect]
     Indication: MIGRAINE
     Dosage: 6MG PER DAY
     Route: 042
  3. IMITREX [Suspect]
     Indication: MIGRAINE
     Route: 048
  4. IMITREX [Suspect]
     Indication: MIGRAINE
     Route: 045
  5. DEVICE [Suspect]
     Indication: MIGRAINE
     Route: 042
  6. ADVIL [Concomitant]
  7. AMBIEN [Concomitant]
  8. ADVIL [Concomitant]

REACTIONS (2)
  - Drug ineffective [Recovered/Resolved]
  - Product quality issue [Unknown]
